FAERS Safety Report 6708867-9 (Version None)
Quarter: 2010Q2

REPORT INFORMATION
  Report Type: 
  Country: None (occurrence: None)
  Receive Date: 20100504
  Receipt Date: 20100423
  Transmission Date: 20101027
  Serious: Yes (Other)
  Sender: FDA-Public Use
  Company Number: US-JNJFOC-20100406911

PATIENT
  Sex: Male
  Weight: 77.11 kg

DRUGS (4)
  1. FENTANYL CITRATE [Suspect]
     Indication: NECK PAIN
     Dosage: NDC 0781-7242-55
     Route: 062
  2. FENTANYL CITRATE [Suspect]
     Indication: BACK PAIN
     Dosage: NDC 0781-7242-55
     Route: 062
  3. FENTANYL CITRATE [Suspect]
     Dosage: NDC 0781-7114-55
     Route: 062
  4. FENTANYL CITRATE [Suspect]
     Dosage: NDC 0781-7114-55
     Route: 062

REACTIONS (2)
  - DRUG INEFFECTIVE [None]
  - HERPES ZOSTER [None]
